FAERS Safety Report 6696717-9 (Version None)
Quarter: 2010Q2

REPORT INFORMATION
  Report Type: 
  Country: None (occurrence: None)
  Receive Date: 20100422
  Receipt Date: 20100413
  Transmission Date: 20101027
  Serious: Yes (Hospitalization)
  Sender: FDA-Public Use
  Company Number: B0647142A

PATIENT
  Age: 46 Year
  Sex: Female

DRUGS (2)
  1. RITUXIMAB (FORMULATION UNKNOWN) (GENERIC) (RITUXIMAB) [Suspect]
     Indication: CASTLEMAN'S DISEASE
     Dosage: 375 MG/M2
  2. HYDROCORTISONE (FORMULATION UNKNOWN) (HYDROCORTISONE) (GENERIC) [Suspect]
     Indication: CASTLEMAN'S DISEASE

REACTIONS (19)
  - ACUTE RESPIRATORY DISTRESS SYNDROME [None]
  - ADRENAL INSUFFICIENCY [None]
  - ANAEMIA [None]
  - ANAEMIA HAEMOLYTIC AUTOIMMUNE [None]
  - CATHETER SITE HAEMORRHAGE [None]
  - CYTOKINE STORM [None]
  - DISSEMINATED INTRAVASCULAR COAGULATION [None]
  - EPISTAXIS [None]
  - HAEMODIALYSIS [None]
  - HYPERCAPNIA [None]
  - HYPOGLYCAEMIA [None]
  - HYPOTENSION [None]
  - METABOLIC ACIDOSIS [None]
  - MULTI-ORGAN FAILURE [None]
  - MUSCULAR WEAKNESS [None]
  - OLIGURIA [None]
  - RENAL FAILURE ACUTE [None]
  - SEPSIS [None]
  - SOMNOLENCE [None]
